FAERS Safety Report 16972090 (Version 1)
Quarter: 2019Q4

REPORT INFORMATION
  Report Type: Spontaneous
  Country: US (occurrence: DE)
  Receive Date: 20191029
  Receipt Date: 20191029
  Transmission Date: 20200122
  Serious: Yes (Death, Life-Threatening, Hospitalization)
  Sender: FDA-Public Use
  Company Number: DE-TEVA-2019-DE-1128818

PATIENT
  Age: 31 Year
  Sex: Male

DRUGS (4)
  1. METHYLPREDNISOLONE. [Suspect]
     Active Substance: METHYLPREDNISOLONE
     Indication: AUTOIMMUNE DISORDER
     Dosage: HIGH-DOSE
     Route: 042
  2. METHYLPREDNISOLONE. [Suspect]
     Active Substance: METHYLPREDNISOLONE
     Indication: NEUROLOGICAL DECOMPENSATION
  3. DEXAMETHASONE. [Suspect]
     Active Substance: DEXAMETHASONE
     Indication: COGNITIVE DISORDER
  4. DEXAMETHASONE. [Suspect]
     Active Substance: DEXAMETHASONE
     Indication: BRAIN OEDEMA
     Dosage: 16 MILLIGRAM DAILY; HIGH-DOSE
     Route: 048

REACTIONS (6)
  - Fungal disease carrier [Fatal]
  - Acute respiratory distress syndrome [Unknown]
  - Pneumonia [Unknown]
  - Blastomycosis [Fatal]
  - Leukocytosis [Unknown]
  - Multiple organ dysfunction syndrome [Fatal]
